FAERS Safety Report 8129910-9 (Version None)
Quarter: 2012Q1

REPORT INFORMATION
  Report Type: 
  Country: None (occurrence: None)
  Receive Date: 20120210
  Receipt Date: 20120203
  Transmission Date: 20120608
  Serious: Yes (Life-Threatening, Hospitalization)
  Sender: FDA-Public Use
  Company Number: DE-BAXTER-2012BH003672

PATIENT
  Age: 18 Year
  Sex: Female
  Weight: 52 kg

DRUGS (2)
  1. CYCLOPHOSPHAMIDE [Suspect]
     Indication: BONE MARROW CONDITIONING REGIMEN
     Route: 042
     Dates: start: 20120112, end: 20120115
  2. ATG-FRESENIUS [Suspect]
     Indication: BONE MARROW CONDITIONING REGIMEN
     Route: 042
     Dates: start: 20120113, end: 20120115

REACTIONS (3)
  - RENAL FAILURE ACUTE [None]
  - DIFFUSE ALVEOLAR DAMAGE [None]
  - PULMONARY ALVEOLAR HAEMORRHAGE [None]
